FAERS Safety Report 9126817 (Version 1)
Quarter: 2013Q1

REPORT INFORMATION
  Report Type: Spontaneous
  Country: FR (occurrence: FR)
  Receive Date: 20130122
  Receipt Date: 20130122
  Transmission Date: 20140127
  Serious: Yes (Life-Threatening, Hospitalization, Other)
  Sender: FDA-Public Use
  Company Number: FR-ASTRAZENECA-2013SE02572

PATIENT
  Age: 28466 Day
  Sex: Male
  Weight: 89 kg

DRUGS (11)
  1. BRILIQUE [Suspect]
     Indication: ACUTE CORONARY SYNDROME
     Route: 048
     Dates: start: 20121205, end: 20130102
  2. BRILIQUE [Suspect]
     Indication: STENT PLACEMENT
     Route: 048
     Dates: start: 20121205, end: 20130102
  3. ASPIRINE [Suspect]
     Indication: ACUTE CORONARY SYNDROME
     Route: 048
  4. ASPIRINE [Suspect]
     Indication: STENT PLACEMENT
     Route: 048
  5. KARDEGIC [Concomitant]
     Indication: ACUTE CORONARY SYNDROME
     Route: 048
  6. CALCIPARINE [Concomitant]
     Indication: ACUTE CORONARY SYNDROME
     Route: 058
  7. TAHOR [Concomitant]
     Indication: ACUTE CORONARY SYNDROME
     Route: 048
  8. TRIATEC [Concomitant]
     Indication: ACUTE CORONARY SYNDROME
     Route: 048
  9. GLUCONATE POTASSIC [Concomitant]
     Indication: ACUTE CORONARY SYNDROME
  10. BURINEX [Concomitant]
     Indication: ACUTE CORONARY SYNDROME
     Route: 042
  11. IMIPENEM [Concomitant]
     Indication: ACUTE CORONARY SYNDROME

REACTIONS (4)
  - Atrioventricular block complete [Unknown]
  - Coronary artery thrombosis [Recovered/Resolved with Sequelae]
  - Pneumonia [Unknown]
  - Drug effect decreased [Recovered/Resolved with Sequelae]
